FAERS Safety Report 23571685 (Version 2)
Quarter: 2024Q2

REPORT INFORMATION
  Report Type: Report from Study
  Country: NL (occurrence: NL)
  Receive Date: 20240227
  Receipt Date: 20240410
  Transmission Date: 20240716
  Serious: Yes (Hospitalization)
  Sender: FDA-Public Use
  Company Number: NL-AstraZeneca-2024A042795

PATIENT
  Age: 6 Month
  Sex: Male
  Weight: 5.1 kg

DRUGS (2)
  1. SYNAGIS [Suspect]
     Active Substance: PALIVIZUMAB
     Indication: Product used for unknown indication
     Dosage: MONTHLY
     Route: 030
     Dates: start: 20240121
  2. FERROCHL [Concomitant]
     Indication: Product used for unknown indication

REACTIONS (1)
  - CSF volume increased [Recovered/Resolved]
